FAERS Safety Report 7952573-X (Version None)
Quarter: 2011Q4

REPORT INFORMATION
  Report Type: 
  Country: None (occurrence: None)
  Receive Date: 20111201
  Receipt Date: 20111128
  Transmission Date: 20120403
  Serious: Yes (Other)
  Sender: FDA-Public Use
  Company Number: MX-SANOFI-AVENTIS-2011SA078254

PATIENT
  Age: 52 Year
  Sex: Female

DRUGS (1)
  1. DOCETAXEL [Suspect]
     Indication: BREAST CANCER
     Route: 065

REACTIONS (12)
  - PIGMENTATION DISORDER [None]
  - HEADACHE [None]
  - DRY SKIN [None]
  - MOUTH ULCERATION [None]
  - VOMITING [None]
  - HAEMORRHAGE [None]
  - STOMATITIS [None]
  - MYALGIA [None]
  - NAUSEA [None]
  - ALOPECIA [None]
  - DECREASED APPETITE [None]
  - ASTHENIA [None]
